FAERS Safety Report 21178328 (Version 20)
Quarter: 2024Q2

REPORT INFORMATION
  Report Type: Report from Study
  Country: AR (occurrence: AR)
  Receive Date: 20220805
  Receipt Date: 20240529
  Transmission Date: 20240715
  Serious: Yes (Other)
  Sender: FDA-Public Use
  Company Number: AR-NOVARTISPH-NVSC2022AR132517

PATIENT
  Age: 62 Year
  Sex: Female

DRUGS (2)
  1. COSENTYX [Suspect]
     Active Substance: SECUKINUMAB
     Indication: Psoriasis
     Dosage: 300 MG, QMO
     Route: 058
     Dates: start: 20220526
  2. COSENTYX [Suspect]
     Active Substance: SECUKINUMAB
     Dosage: 150 MG (ONCE EVERY TWO WEEKS)
     Route: 065

REACTIONS (31)
  - Diverticulitis [Unknown]
  - Psoriatic arthropathy [Unknown]
  - Arthralgia [Unknown]
  - Psoriasis [Unknown]
  - Pustule [Unknown]
  - Pharyngitis [Not Recovered/Not Resolved]
  - Dysphonia [Unknown]
  - Peripheral swelling [Unknown]
  - Pruritus [Unknown]
  - Liver disorder [Not Recovered/Not Resolved]
  - Gastrooesophageal reflux disease [Not Recovered/Not Resolved]
  - Bone pain [Unknown]
  - Pyrexia [Unknown]
  - Disturbance in attention [Unknown]
  - Memory impairment [Unknown]
  - Stress [Unknown]
  - Blister [Unknown]
  - Application site discolouration [Unknown]
  - Pain [Unknown]
  - Burning sensation [Unknown]
  - Malaise [Unknown]
  - Tongue rough [Unknown]
  - Dry eye [Unknown]
  - Tongue dry [Unknown]
  - Abdominal pain [Unknown]
  - Drug hypersensitivity [Unknown]
  - Inappropriate schedule of product administration [Unknown]
  - Gastritis [Unknown]
  - Musculoskeletal chest pain [Unknown]
  - Dengue fever [Unknown]
  - Arthritis [Unknown]

NARRATIVE: CASE EVENT DATE: 20220501
